FAERS Safety Report 6992663-1 (Version None)
Quarter: 2010Q3

REPORT INFORMATION
  Report Type: 
  Country: None (occurrence: None)
  Receive Date: 20100916
  Receipt Date: 20100916
  Transmission Date: 20110219
  Serious: Yes (Other)
  Sender: FDA-Public Use
  Company Number: None

PATIENT
  Age: 26 Year
  Sex: Male
  Weight: 70.3075 kg

DRUGS (1)
  1. LAMICTAL [Suspect]
     Indication: CONVULSION
     Dosage: 100MG 2X DAILY PO
     Route: 048
     Dates: start: 20061001, end: 20100801

REACTIONS (3)
  - AMNESIA [None]
  - APHASIA [None]
  - DISTURBANCE IN ATTENTION [None]
